FAERS Safety Report 17677058 (Version 1)
Quarter: 2020Q2

REPORT INFORMATION
  Report Type: Spontaneous
  Country: US (occurrence: US)
  Receive Date: 20200416
  Receipt Date: 20200416
  Transmission Date: 20200714
  Serious: No
  Sender: FDA-Public Use
  Company Number: US-AERIE-US-2019-001061

PATIENT

DRUGS (2)
  1. PILOCARPINE. [Suspect]
     Active Substance: PILOCARPINE
     Indication: GLAUCOMA
     Dosage: UNK
     Route: 047
     Dates: end: 201912
  2. RHOPRESSA [Suspect]
     Active Substance: NETARSUDIL MESYLATE
     Indication: GLAUCOMA
     Dosage: 1 GTT, EVERY OTHER DAY
     Route: 047
     Dates: start: 20190528

REACTIONS (2)
  - Alopecia [Not Recovered/Not Resolved]
  - Off label use [Unknown]

NARRATIVE: CASE EVENT DATE: 201907
